FAERS Safety Report 8130176-4 (Version None)
Quarter: 2012Q1

REPORT INFORMATION
  Report Type: 
  Country: None (occurrence: None)
  Receive Date: 20120210
  Receipt Date: 20120206
  Transmission Date: 20120608
  Serious: Yes (Other)
  Sender: FDA-Public Use
  Company Number: DE-ELI_LILLY_AND_COMPANY-DE201201004558

PATIENT
  Age: 62 Year
  Sex: Female

DRUGS (5)
  1. OLMESARTAN MEDOXOMIL AND HYDROCHLOROTHIZIDE [Concomitant]
     Dosage: 40 MG, UNKNOWN
  2. BYDUREON [Suspect]
     Indication: TYPE 2 DIABETES MELLITUS
     Dosage: 2 MG, WEEKLY (1/W)
     Route: 058
     Dates: start: 20111201
  3. SERTRALINE HYDROCHLORIDE [Concomitant]
  4. METFORMIN HCL [Concomitant]
     Dosage: 1000 MG, UNKNOWN
  5. CLOPIDOGREL [Concomitant]
     Dosage: 75 MG, UNKNOWN

REACTIONS (9)
  - ARRHYTHMIA [None]
  - VISION BLURRED [None]
  - INJECTION SITE INDURATION [None]
  - MUSCLE SPASMS [None]
  - DYSPEPSIA [None]
  - DEPRESSION [None]
  - DYSPNOEA [None]
  - GASTROOESOPHAGEAL REFLUX DISEASE [None]
  - DIZZINESS [None]
